FAERS Safety Report 9265386 (Version 2)
Quarter: 2015Q2

REPORT INFORMATION
  Report Type: Spontaneous
  Country: JP (occurrence: JP)
  Receive Date: 20130501
  Receipt Date: 20150420
  Transmission Date: 20150821
  Serious: Yes (Other)
  Sender: FDA-Public Use
  Company Number: PHHY2013JP042175

PATIENT
  Age: 5 Year
  Sex: Female

DRUGS (1)
  1. ENALAPRIL [Suspect]
     Active Substance: ENALAPRIL
     Indication: PRODUCT USED FOR UNKNOWN INDICATION
     Route: 065

REACTIONS (12)
  - Bone disorder [Unknown]
  - Gouty tophus [Recovering/Resolving]
  - Renal impairment [Recovering/Resolving]
  - Peripheral swelling [Recovering/Resolving]
  - Feeling hot [Recovering/Resolving]
  - Swelling [Recovering/Resolving]
  - Ascites [Unknown]
  - Pathological fracture [Unknown]
  - Generalised oedema [Unknown]
  - Hyperuricaemia [Recovering/Resolving]
  - Hepatosplenomegaly [Unknown]
  - Erythema [Recovering/Resolving]
